FAERS Safety Report 6254860-2 (Version None)
Quarter: 2009Q3

REPORT INFORMATION
  Report Type: 
  Country: None (occurrence: None)
  Receive Date: 20090702
  Receipt Date: 20090625
  Transmission Date: 20100115
  Serious: Yes (Hospitalization, Other)
  Sender: FDA-Public Use
  Company Number: FR-ABBOTT-09P-056-0582134-00

PATIENT
  Sex: Male
  Weight: 67 kg

DRUGS (5)
  1. NORVIR [Interacting]
     Indication: HIV INFECTION
     Route: 048
  2. PREZISTA [Suspect]
     Indication: HIV INFECTION
     Route: 048
     Dates: start: 20080401
  3. ETRAVIRINE [Suspect]
     Indication: HIV INFECTION
     Route: 048
     Dates: start: 20080401
  4. RALTEGRAVIR [Suspect]
     Indication: HIV INFECTION
     Route: 048
     Dates: start: 20080401
  5. CRESTOR [Interacting]
     Indication: CARDIAC DISORDER
     Dosage: 10 MG DAILY

REACTIONS (10)
  - ACUTE CORONARY SYNDROME [None]
  - ANGINA PECTORIS [None]
  - BLOOD PRESSURE DECREASED [None]
  - BRADYCARDIA [None]
  - CHEST PAIN [None]
  - CORONARY ARTERY STENOSIS [None]
  - DRUG INTERACTION [None]
  - DRUG LEVEL INCREASED [None]
  - DYSPNOEA EXERTIONAL [None]
  - HYPERCHOLESTEROLAEMIA [None]
